FAERS Safety Report 8247266-8 (Version None)
Quarter: 2012Q1

REPORT INFORMATION
  Report Type: 
  Country: None (occurrence: None)
  Receive Date: 20120329
  Receipt Date: 20120329
  Transmission Date: 20120608
  Serious: No
  Sender: FDA-Public Use
  Company Number: None

PATIENT
  Age: 21 Year
  Sex: Female

DRUGS (2)
  1. MINOCYCLINE HCL [Suspect]
     Dates: start: 20090101, end: 20091203
  2. LEVOFLOXACIN [Suspect]
     Dates: start: 20091201, end: 20091214

REACTIONS (17)
  - LUNG INFILTRATION [None]
  - BLOOD ALKALINE PHOSPHATASE INCREASED [None]
  - ANTINUCLEAR ANTIBODY INCREASED [None]
  - PRURITUS [None]
  - YELLOW SKIN [None]
  - BLOOD ALBUMIN INCREASED [None]
  - ARTHRALGIA [None]
  - JAUNDICE [None]
  - ASPARTATE AMINOTRANSFERASE INCREASED [None]
  - RASH [None]
  - COUGH [None]
  - BLOOD BILIRUBIN INCREASED [None]
  - FATIGUE [None]
  - DYSPNOEA [None]
  - SYSTEMIC LUPUS ERYTHEMATOSUS [None]
  - ALANINE AMINOTRANSFERASE INCREASED [None]
  - CHROMATURIA [None]
